FAERS Safety Report 15936769 (Version 1)
Quarter: 2019Q1

REPORT INFORMATION
  Report Type: Spontaneous
  Country: ES (occurrence: ES)
  Receive Date: 20190208
  Receipt Date: 20190208
  Transmission Date: 20190417
  Serious: Yes (Life-Threatening, Hospitalization)
  Sender: FDA-Public Use
  Company Number: ES-SA-2019SA035971

PATIENT
  Age: 50 Year
  Sex: Female

DRUGS (1)
  1. VANDETANIB. [Suspect]
     Active Substance: VANDETANIB
     Dosage: 300 MG / 24 H
     Route: 048
     Dates: start: 20171103, end: 2018

REACTIONS (2)
  - Vasculitis [Not Recovered/Not Resolved]
  - Pneumonitis [Recovering/Resolving]

NARRATIVE: CASE EVENT DATE: 20181116
